FAERS Safety Report 14315094 (Version 1)
Quarter: 2017Q4

REPORT INFORMATION
  Report Type: Spontaneous
  Country: DE (occurrence: DE)
  Receive Date: 20171221
  Receipt Date: 20171221
  Transmission Date: 20180321
  Serious: Yes (Hospitalization, Other)
  Sender: FDA-Public Use
  Company Number: DE-MYLANLABS-2017M1079868

PATIENT
  Age: 79 Year
  Sex: Female
  Weight: 67 kg

DRUGS (20)
  1. OXALIPLATIN. [Suspect]
     Active Substance: OXALIPLATIN
     Dosage: DAILY DOSE: 167.7 MG MILLIGRAM(S) EVERY 3 WEEK
     Route: 042
     Dates: start: 20130530, end: 20130620
  2. ACETYLSALICYLIC ACID [Concomitant]
     Active Substance: ASPIRIN
     Route: 065
  3. DIOVAN [Concomitant]
     Active Substance: VALSARTAN
     Indication: HYPERTENSION
     Route: 048
  4. OXALIPLATIN. [Suspect]
     Active Substance: OXALIPLATIN
     Indication: COLORECTAL CANCER METASTATIC
     Dosage: 146.2 - 110 MG
     Route: 042
     Dates: start: 20130502, end: 20130516
  5. CONCOR [Concomitant]
     Active Substance: BISOPROLOL FUMARATE
     Indication: HYPERTENSION
     Route: 065
  6. FLUOROURACIL. [Suspect]
     Active Substance: FLUOROURACIL
     Dosage: 161.25 MG, UNK
     Route: 041
  7. AVASTIN [Suspect]
     Active Substance: BEVACIZUMAB
     Dosage: DAILY DOSE: 502.5 MG MILLIGRAM(S) EVERY 3 WEEK
     Route: 042
     Dates: start: 20130620
  8. OXALIPLATIN. [Suspect]
     Active Substance: OXALIPLATIN
     Dosage: DAILY DOSE: 167.7 MG MILLIGRAM(S) EVERY 3 WEEK
     Route: 042
     Dates: start: 20130620
  9. XELODA [Suspect]
     Active Substance: CAPECITABINE
     Indication: COLORECTAL CANCER METASTATIC
     Dosage: ON DAY 1-4 OF 3 WEEK CYCLE
     Route: 048
  10. FLUOROURACIL. [Suspect]
     Active Substance: FLUOROURACIL
     Dosage: 5160 MG, UNK
     Route: 042
     Dates: start: 20130502, end: 20130504
  11. FERRO SANOL [Concomitant]
     Active Substance: FERROUS GLYCINE SULFATE
     Indication: IRON DEFICIENCY
     Route: 048
  12. PANTOZOL [Concomitant]
     Active Substance: PANTOPRAZOLE SODIUM
     Indication: PROPHYLAXIS
     Route: 048
  13. XELODA [Suspect]
     Active Substance: CAPECITABINE
     Indication: COLORECTAL CANCER METASTATIC
     Dosage: 2600, 1300 MG DOSE
     Route: 048
  14. BISOHEXAL [Concomitant]
     Active Substance: BISOPROLOL FUMARATE
     Indication: HYPERTENSION
     Route: 048
  15. FLUOROURACIL. [Suspect]
     Active Substance: FLUOROURACIL
     Indication: COLORECTAL CANCER METASTATIC
     Dosage: 5160 MG, UNK
     Route: 041
     Dates: start: 20130502, end: 20130504
  16. AVASTIN [Suspect]
     Active Substance: BEVACIZUMAB
     Indication: COLORECTAL CANCER METASTATIC
     Dosage: 335 MG, UNK
     Route: 042
  17. XELODA [Suspect]
     Active Substance: CAPECITABINE
     Dosage: ON DAYS 1-14 OF 3 WEEK CYCLE
     Route: 048
  18. XELODA [Suspect]
     Active Substance: CAPECITABINE
     Dosage: ON DAYS 1-14 OF 3 WEEK CYCLE
     Route: 048
  19. MONO-EMBOLEX [Concomitant]
     Active Substance: CERTOPARIN SODIUM
     Indication: THROMBOSIS PROPHYLAXIS
     Route: 058
  20. HEPARIN [Concomitant]
     Active Substance: HEPARIN SODIUM
     Indication: THROMBOSIS PROPHYLAXIS
     Route: 065

REACTIONS (5)
  - Dehydration [Recovered/Resolved]
  - Paraesthesia [Not Recovered/Not Resolved]
  - Diarrhoea [Recovered/Resolved]
  - Renal failure [Recovered/Resolved]
  - Vomiting [Recovered/Resolved]

NARRATIVE: CASE EVENT DATE: 20130504
